FAERS Safety Report 4524004-3 (Version None)
Quarter: 2004Q4

REPORT INFORMATION
  Report Type: 
  Country: None (occurrence: None)
  Receive Date: 20041210
  Receipt Date: 20041201
  Transmission Date: 20050328
  Serious: Yes (Hospitalization)
  Sender: FDA-Public Use
  Company Number: US-ABBOTT-04P-163-0281954-00

PATIENT
  Sex: Female
  Weight: 47.67 kg

DRUGS (8)
  1. DEPAKOTE [Suspect]
     Indication: CONVULSION
     Route: 048
     Dates: start: 20010501, end: 20040801
  2. DEPAKOTE [Suspect]
     Route: 048
     Dates: start: 20040801
  3. ALBUTEROL [Concomitant]
     Indication: ASTHMA
     Route: 055
  4. MULTIVITAMIN [Concomitant]
     Indication: DRUG USE FOR UNKNOWN INDICATION
     Route: 048
  5. GLIPIZIDE [Concomitant]
     Indication: DIABETES MELLITUS
     Route: 048
  6. CARBAMAZEPINE [Concomitant]
     Indication: CONVULSION
     Route: 048
  7. BUDESONIDE [Concomitant]
     Indication: HYPERSENSITIVITY
     Route: 048
  8. BUDESONIDE [Concomitant]
     Indication: ASTHMA
     Route: 048

REACTIONS (2)
  - ANTICONVULSANT DRUG LEVEL INCREASED [None]
  - RASH [None]
